FAERS Safety Report 11703838 (Version 1)
Quarter: 2015Q4

REPORT INFORMATION
  Report Type: Spontaneous
  Country: US (occurrence: US)
  Receive Date: 20151106
  Receipt Date: 20151106
  Transmission Date: 20160304
  Serious: No
  Sender: FDA-Public Use
  Company Number: US-ASTRAZENECA-2015SF03845

PATIENT
  Sex: Male

DRUGS (2)
  1. ENBREL [Suspect]
     Active Substance: ETANERCEPT
     Indication: AUTOIMMUNE NEUROPATHY
     Route: 065
     Dates: start: 20151012
  2. NEXIUM [Suspect]
     Active Substance: ESOMEPRAZOLE MAGNESIUM
     Route: 048

REACTIONS (8)
  - Burns second degree [Unknown]
  - Blister [Unknown]
  - Somnolence [Unknown]
  - Burning sensation [Unknown]
  - Rash [Unknown]
  - Urticaria [Unknown]
  - Product use issue [Unknown]
  - Muscle spasms [Unknown]

NARRATIVE: CASE EVENT DATE: 201510
